FAERS Safety Report 8732853 (Version 2)
Quarter: 2012Q4

REPORT INFORMATION
  Report Type: 
  Country: JP (occurrence: JP)
  Receive Date: 20120820
  Receipt Date: 20120904
  Transmission Date: 20130627
  Serious: Yes (Other)
  Sender: FDA-Public Use
  Company Number: JP-PFIZER INC-2012202069

PATIENT
  Age: 74 Year
  Sex: Female

DRUGS (3)
  1. CELECOX [Suspect]
     Dosage: 200 mg, daily
     Route: 048
     Dates: end: 201208
  2. CELECOX [Suspect]
     Dosage: 200 mg, daily
     Route: 048
     Dates: start: 201208
  3. EVISTA [Concomitant]
     Dosage: UNK

REACTIONS (2)
  - Blood glucose increased [Unknown]
  - Glycosylated haemoglobin increased [Unknown]
